FAERS Safety Report 5446289-1 (Version None)
Quarter: 2007Q3

REPORT INFORMATION
  Report Type: 
  Country: None (occurrence: None)
  Receive Date: 20070731
  Receipt Date: 20070620
  Transmission Date: 20080115
  Serious: No
  Sender: FDA-Public Use
  Company Number: US200706004574

PATIENT
  Sex: Male

DRUGS (3)
  1. BYETTA [Suspect]
     Dosage: 5 UG,   10 UG,   5 UG,
     Dates: start: 20070101, end: 20070101
  2. BYETTA [Suspect]
     Dosage: 5 UG,   10 UG,   5 UG,
     Dates: start: 20070401, end: 20070101
  3. BYETTA [Suspect]
     Dosage: 5 UG,   10 UG,   5 UG,
     Dates: start: 20070101

REACTIONS (1)
  - PALPITATIONS [None]
